FAERS Safety Report 16345900 (Version 1)
Quarter: 2019Q2

REPORT INFORMATION
  Report Type: Spontaneous
  Country: US (occurrence: US)
  Receive Date: 20190523
  Receipt Date: 20190523
  Transmission Date: 20190711
  Serious: No
  Sender: FDA-Public Use
  Company Number: US-AUROBINDO-AUR-APL-2019-017858

PATIENT

DRUGS (1)
  1. PRAVASTATIN SODIUM TABLET USP 40 MG [Suspect]
     Active Substance: PRAVASTATIN SODIUM
     Indication: PRODUCT USED FOR UNKNOWN INDICATION
     Route: 065

REACTIONS (3)
  - Muscle spasms [Unknown]
  - Product substitution issue [Unknown]
  - Sleep disorder [Unknown]
